FAERS Safety Report 7784116-8 (Version None)
Quarter: 2011Q3

REPORT INFORMATION
  Report Type: 
  Country: None (occurrence: None)
  Receive Date: 20110928
  Receipt Date: 20110916
  Transmission Date: 20111222
  Serious: Yes (Hospitalization)
  Sender: FDA-Public Use
  Company Number: US-ENDO PHARMACEUTICALS INC.-PREV20110005

PATIENT
  Sex: Female

DRUGS (2)
  1. PREVIFEM [Suspect]
     Indication: HAEMOPHILIA
  2. PREVIFEM [Suspect]
     Indication: MENSTRUATION IRREGULAR
     Dosage: 1 TABLET
     Route: 048
     Dates: start: 20101214, end: 20110305

REACTIONS (3)
  - PARAESTHESIA [None]
  - TRANSIENT ISCHAEMIC ATTACK [None]
  - PARAESTHESIA ORAL [None]
